FAERS Safety Report 12402501 (Version 1)
Quarter: 2016Q2

REPORT INFORMATION
  Report Type: Spontaneous
  Country: PE (occurrence: PE)
  Receive Date: 20160525
  Receipt Date: 20160525
  Transmission Date: 20160815
  Serious: Yes (Other)
  Sender: FDA-Public Use
  Company Number: PE-PFIZER INC-2016263824

PATIENT
  Age: 80 Year
  Sex: Female

DRUGS (2)
  1. XALATAN [Suspect]
     Active Substance: LATANOPROST
     Dosage: UNK
  2. GLEMAZ [Concomitant]
     Dosage: 4 MG, UNK

REACTIONS (1)
  - Diabetes mellitus [Unknown]
